FAERS Safety Report 13515801 (Version 1)
Quarter: 2017Q2

REPORT INFORMATION
  Report Type: Spontaneous
  Country: DE (occurrence: DE)
  Receive Date: 20170504
  Receipt Date: 20170504
  Transmission Date: 20170830
  Serious: Yes (Hospitalization)
  Sender: FDA-Public Use
  Company Number: DE-AMGEN-DEUSP2017067498

PATIENT
  Age: 43 Year
  Sex: Female

DRUGS (5)
  1. EPIRUBICIN [Suspect]
     Active Substance: EPIRUBICIN
     Indication: BREAST CANCER
     Dosage: 246 MG, (1 IN 2 WK)
     Route: 042
     Dates: start: 20150814
  2. EMEND [Concomitant]
     Active Substance: APREPITANT
     Dosage: 120 MG, UNK (5 DAYS)
     Dates: start: 20150814, end: 20150818
  3. KEVATRIL [Concomitant]
     Active Substance: GRANISETRON HYDROCHLORIDE
     Dosage: 1 MG, UNK (1 DAYS)
     Dates: start: 20150814, end: 20150814
  4. NEULASTA [Suspect]
     Active Substance: PEGFILGRASTIM
     Indication: PRODUCT USED FOR UNKNOWN INDICATION
     Dosage: 30 MIO, UNK
     Route: 065
     Dates: start: 20150815, end: 20150815
  5. DEXAMETHASON [Concomitant]
     Active Substance: DEXAMETHASONE
     Dosage: 12 MG, UNK (1 DAYS)
     Dates: start: 20150814, end: 20150814

REACTIONS (1)
  - Pyrexia [Recovered/Resolved]

NARRATIVE: CASE EVENT DATE: 20150822
